FAERS Safety Report 7043646 (Version 3)
Quarter: 2013Q4

REPORT INFORMATION
  Report Type: Spontaneous
  Country: US (occurrence: None)
  Receive Date: 20090624
  Receipt Date: 20131107
  Transmission Date: 20140711
  Serious: Yes (Hospitalization, Other)
  Sender: FDA-Public Use
  Company Number: 2009S1004746

PATIENT
  Age: 74 Year
  Sex: Female
  Weight: 59.88 kg

DRUGS (6)
  1. PHOSPHO-SODA [Suspect]
     Indication: COLONOSCOPY
     Dosage: 90 ML, 45ML AT 7PM + 45ML AT 11PM, ORAL
     Route: 048
     Dates: start: 20080324, end: 20080324
  2. LOTREL (BENAZEPRIL HYDOCHLORIDE, AMLODIPINE BESILATE) (TABLET) [Concomitant]
  3. EVISTA (RALOXIFENE HYDROCHLORIDE) (60 MILLIGRAM, TABLET) [Concomitant]
  4. PREDNISONE (PREDNISONE) (5 MILLIGRAM, TABLET) [Concomitant]
  5. ASPIRIN (ACETYLSALICYLIC ACID) (81 MILLIGRAM, TABLET) [Concomitant]
  6. VITAMIN D (ERGOCALCIFEROL) [Concomitant]

REACTIONS (5)
  - Renal disorder [None]
  - Nephrocalcinosis [None]
  - Renal failure acute [None]
  - Hypokalaemia [None]
  - Renal tubular necrosis [None]
